FAERS Safety Report 24994800 (Version 2)
Quarter: 2025Q1

REPORT INFORMATION
  Report Type: Spontaneous
  Country: GR (occurrence: GR)
  Receive Date: 20250221
  Receipt Date: 20250321
  Transmission Date: 20250409
  Serious: Yes (Other)
  Sender: RANBAXY
  Company Number: GR-SUN PHARMACEUTICAL INDUSTRIES LTD-2025R1-494694

PATIENT
  Age: 17 Month
  Sex: Female

DRUGS (3)
  1. VALPROIC ACID [Suspect]
     Active Substance: VALPROIC ACID
     Indication: Psychotic disorder
     Dosage: 1000 MILLIGRAM, DAILY
     Route: 064
  2. ARIPIPRAZOLE [Concomitant]
     Active Substance: ARIPIPRAZOLE
     Indication: Psychotic disorder
     Route: 064
  3. DIAZEPAM [Concomitant]
     Active Substance: DIAZEPAM
     Indication: Psychotic disorder
     Route: 065

REACTIONS (1)
  - Foetal anticonvulsant syndrome [Unknown]
